FAERS Safety Report 6197305-3 (Version None)
Quarter: 2009Q2

REPORT INFORMATION
  Report Type: 
  Country: None (occurrence: None)
  Receive Date: 20090521
  Receipt Date: 20090504
  Transmission Date: 20091009
  Serious: Yes (Hospitalization)
  Sender: FDA-Public Use
  Company Number: DE-JNJFOC-20090503566

PATIENT
  Sex: Female

DRUGS (2)
  1. TRAMADOL HCL [Suspect]
     Indication: PAIN
  2. NOVALGIN [Concomitant]

REACTIONS (40)
  - ABDOMINAL PAIN LOWER [None]
  - AORTIC ARTERIOSCLEROSIS [None]
  - AORTIC STENOSIS [None]
  - BLOOD CREATININE INCREASED [None]
  - BREATH SOUNDS [None]
  - BUNDLE BRANCH BLOCK LEFT [None]
  - C-REACTIVE PROTEIN INCREASED [None]
  - CARDIAC DISORDER [None]
  - CARDIAC FAILURE [None]
  - CHEST PAIN [None]
  - CONSTIPATION [None]
  - DIARRHOEA [None]
  - EMPHYSEMA [None]
  - FAECALOMA [None]
  - FLATULENCE [None]
  - HELICOBACTER GASTRITIS [None]
  - HIATUS HERNIA [None]
  - HYPOTENSION [None]
  - INVESTIGATION ABNORMAL [None]
  - KYPHOSIS [None]
  - LIVER DISORDER [None]
  - LUNG DISORDER [None]
  - LYMPH NODES SCAN ABNORMAL [None]
  - NAUSEA [None]
  - OSTEOARTHRITIS [None]
  - OSTEOCHONDROSIS [None]
  - OSTEOPOROSIS [None]
  - PLEURAL EFFUSION [None]
  - PNEUMONIA [None]
  - PROTHROMBIN TIME PROLONGED [None]
  - PULMONARY CONGESTION [None]
  - PULMONARY HYPERTENSION [None]
  - RHONCHI [None]
  - RIGHT VENTRICULAR HYPERTROPHY [None]
  - SCOLIOSIS [None]
  - SINUS TACHYCARDIA [None]
  - SPINAL OSTEOARTHRITIS [None]
  - TRICUSPID VALVE INCOMPETENCE [None]
  - VOMITING [None]
  - X-RAY OF PELVIS AND HIP ABNORMAL [None]
